FAERS Safety Report 10981377 (Version 1)
Quarter: 2015Q1

REPORT INFORMATION
  Report Type: Spontaneous
  Country: US (occurrence: None)
  Receive Date: 20150227
  Receipt Date: 20150227
  Transmission Date: 20150721
  Serious: Yes (Other)
  Sender: FDA-Public Use
  Company Number: LMI-2014-00406

PATIENT
  Age: 48 Year
  Sex: Male
  Weight: 88.9 kg

DRUGS (8)
  1. ZOCOR [Concomitant]
     Active Substance: SIMVASTATIN
  2. CLOBETASOL (FOAM) [Concomitant]
  3. DEFINITY [Suspect]
     Active Substance: PERFLUTREN
     Indication: STRESS ECHOCARDIOGRAM
     Dosage: (1 VIAL OF DEFINITY DILUTED IN 7ML NORMAL PRESERVATIVE FREE SALINE) (1ML, 1 IN 1 D)
     Route: 040
     Dates: start: 20140908, end: 20140908
  4. ACETYLSALICYLIC ACID [Concomitant]
     Active Substance: ASPIRIN
  5. LOSARTAN [Concomitant]
     Active Substance: LOSARTAN
  6. METFORMIN [Concomitant]
     Active Substance: METFORMIN HYDROCHLORIDE
  7. RAMELTEON [Concomitant]
     Active Substance: RAMELTEON
  8. VIAGRA [Concomitant]
     Active Substance: SILDENAFIL CITRATE

REACTIONS (1)
  - Presyncope [None]

NARRATIVE: CASE EVENT DATE: 20140908
